APPROVED DRUG PRODUCT: DROSPIRENONE
Active Ingredient: DROSPIRENONE
Strength: 3.5MG
Dosage Form/Route: TABLET, CHEWABLE;ORAL
Application: N216285 | Product #001
Applicant: EXELTIS USA INC
Approved: Jun 29, 2022 | RLD: Yes | RS: No | Type: DISCN

PATENTS:
Patent 10603281 | Expires: Jun 28, 2031
Patent 10849857 | Expires: Jun 28, 2031
Patent 12090231 | Expires: Jun 28, 2031
Patent 9603860 | Expires: Jun 28, 2031
Patent 10179140 | Expires: Jun 28, 2031
Patent 11413249 | Expires: Jun 28, 2031
Patent 11951213 | Expires: Jun 28, 2031
Patent 11351122 | Expires: Jun 28, 2031
Patent 11123299 | Expires: Jun 28, 2031
Patent 11439598 | Expires: Jun 28, 2031
Patent 11291633 | Expires: Jun 28, 2031
Patent 10987364 | Expires: Jun 28, 2031
Patent 11291632 | Expires: Jun 28, 2031
Patent 11504334 | Expires: Jun 28, 2031
Patent 11478487 | Expires: Jun 28, 2031